FAERS Safety Report 8395609-7 (Version None)
Quarter: 2012Q2

REPORT INFORMATION
  Report Type: 
  Country: None (occurrence: None)
  Receive Date: 20120530
  Receipt Date: 20111111
  Transmission Date: 20120825
  Serious: No
  Sender: FDA-Public Use
  Company Number: US-GLAXOSMITHKLINE-A0952818A

PATIENT
  Age: 68 Year
  Sex: Female

DRUGS (8)
  1. SINGULAIR [Concomitant]
  2. METFORMIN HCL [Concomitant]
  3. ASPIRIN [Concomitant]
  4. VENTOLIN [Suspect]
     Indication: ASTHMA
     Dosage: 2PUFF FOUR TIMES PER DAY
     Route: 055
     Dates: start: 20111001
  5. VITAMIN D CALCIUM [Concomitant]
  6. ZOCOR [Concomitant]
  7. SYNTHROID [Concomitant]
  8. LISINOPRIL [Concomitant]

REACTIONS (3)
  - THROAT IRRITATION [None]
  - DYSPHONIA [None]
  - PHARYNGEAL ERYTHEMA [None]
